FAERS Safety Report 10667842 (Version 1)
Quarter: 2014Q4

REPORT INFORMATION
  Report Type: Spontaneous
  Country: US (occurrence: None)
  Receive Date: 20141219
  Receipt Date: 20141219
  Transmission Date: 20150529
  Serious: Yes (Hospitalization)
  Sender: FDA-Public Use
  Company Number: None

PATIENT
  Age: 65 Year
  Sex: Female
  Weight: 97.1 kg

DRUGS (2)
  1. SUNITINIB MALATE (SU011248 L-MALATE) [Suspect]
     Active Substance: SUNITINIB MALATE
     Dates: end: 20141214
  2. GEMCITABINE HYDROCHLORIDE. [Suspect]
     Active Substance: GEMCITABINE HYDROCHLORIDE
     Dates: end: 20141208

REACTIONS (8)
  - Palpitations [None]
  - Haematemesis [None]
  - Dyspnoea exertional [None]
  - Melaena [None]
  - Nausea [None]
  - Thrombosis [None]
  - Epistaxis [None]
  - Retching [None]

NARRATIVE: CASE EVENT DATE: 20141217
